FAERS Safety Report 7503979-4 (Version None)
Quarter: 2011Q2

REPORT INFORMATION
  Report Type: 
  Country: None (occurrence: None)
  Receive Date: 20110524
  Receipt Date: 20110524
  Transmission Date: 20111010
  Serious: Yes (Life-Threatening)
  Sender: FDA-Public Use
  Company Number: None

PATIENT
  Age: 54 Year
  Sex: Female
  Weight: 101 kg

DRUGS (10)
  1. ADVAIR DISKUS 100/50 [Concomitant]
  2. DOCETAXEL [Suspect]
     Dates: start: 20110510
  3. ALBUTEROL SULFATE AUTOHALER [Concomitant]
  4. VITAMIN D [Concomitant]
  5. COMBIVENT [Concomitant]
  6. DEXAMETHASONE [Concomitant]
  7. LANTUS [Concomitant]
  8. OXYCODONE HCL [Concomitant]
  9. NOVOLOG [Concomitant]
  10. DOCETAXEL [Suspect]
     Indication: LUNG NEOPLASM MALIGNANT
     Dosage: 145MG/100MLD5W Q21 DAYS IV
     Route: 042
     Dates: start: 20110419

REACTIONS (11)
  - SKIN DISCOLOURATION [None]
  - HEART RATE INCREASED [None]
  - WHEEZING [None]
  - PULSE ABSENT [None]
  - BLOOD PRESSURE INCREASED [None]
  - CARDIAC DISORDER [None]
  - SYNCOPE [None]
  - INFUSION RELATED REACTION [None]
  - RESPIRATORY DISORDER [None]
  - RESPIRATORY ARREST [None]
  - HYPOXIA [None]
